FAERS Safety Report 25113623 (Version 2)
Quarter: 2025Q2

REPORT INFORMATION
  Report Type: Report from Study
  Country: US (occurrence: US)
  Receive Date: 20250324
  Receipt Date: 20250423
  Transmission Date: 20250716
  Serious: Yes (Hospitalization)
  Sender: ABBVIE
  Company Number: US-ABBVIE-6191086

PATIENT
  Sex: Female

DRUGS (2)
  1. VENCLEXTA [Suspect]
     Active Substance: VENETOCLAX
     Indication: B-cell small lymphocytic lymphoma
     Dosage: LAST ADMIN DATE: 2023
     Route: 048
     Dates: start: 202309
  2. VENCLEXTA [Suspect]
     Active Substance: VENETOCLAX
     Indication: B-cell small lymphocytic lymphoma
     Route: 048
     Dates: start: 20231123

REACTIONS (4)
  - Blood glucose abnormal [Not Recovered/Not Resolved]
  - Blood sodium decreased [Unknown]
  - Blood potassium decreased [Unknown]
  - Nervousness [Unknown]

NARRATIVE: CASE EVENT DATE: 20250417
